FAERS Safety Report 5533188-X (Version None)
Quarter: 2007Q4

REPORT INFORMATION
  Report Type: 
  Country: None (occurrence: None)
  Receive Date: 20071120
  Receipt Date: 20070719
  Transmission Date: 20080405
  Serious: No
  Sender: FDA-Public Use
  Company Number: WAES 0701USA03355

PATIENT
  Age: 64 Year
  Sex: Female
  Weight: 122.4712 kg

DRUGS (3)
  1. JANUVIA [Suspect]
     Indication: TYPE 2 DIABETES MELLITUS
     Dosage: 100  MG/DAILY/PO
     Route: 048
     Dates: start: 20070110, end: 20070117
  2. INSULIN [Concomitant]
  3. PREDNISONE TAB [Concomitant]

REACTIONS (1)
  - BLOOD GLUCOSE INCREASED [None]
